FAERS Safety Report 5174525-8 (Version None)
Quarter: 2006Q4

REPORT INFORMATION
  Report Type: 
  Country: None (occurrence: None)
  Receive Date: 20061214
  Receipt Date: 20060608
  Transmission Date: 20070319
  Serious: No
  Sender: FDA-Public Use
  Company Number: US-AMGEN-KDL182310

PATIENT
  Sex: Female

DRUGS (9)
  1. ENBREL [Suspect]
     Indication: PSORIASIS
     Dates: start: 20060417
  2. TRICOR [Concomitant]
  3. METOPROLOL SUCCINATE [Concomitant]
  4. DIOVAN HCT [Concomitant]
  5. PROTONIX [Concomitant]
  6. SINGULAIR [Concomitant]
  7. WELLBUTRIN [Concomitant]
  8. SYNTHROID [Concomitant]
  9. BENADRYL [Concomitant]

REACTIONS (1)
  - MUMPS [None]
